FAERS Safety Report 8398155 (Version 3)
Quarter: 2013Q2

REPORT INFORMATION
  Report Type: Spontaneous
  Country: JP (occurrence: JP)
  Receive Date: 20120209
  Receipt Date: 20130405
  Transmission Date: 20140414
  Serious: Yes (Life-Threatening, Hospitalization, Other)
  Sender: FDA-Public Use
  Company Number: JP-PFIZER INC-2011307293

PATIENT
  Age: 80 Year
  Sex: Female

DRUGS (12)
  1. LYRICA [Suspect]
     Indication: SPINAL COLUMN STENOSIS
     Dosage: UNK
     Route: 048
     Dates: start: 20111111, end: 20111214
  2. LYRICA [Suspect]
     Indication: HYPOAESTHESIA
  3. EBIOS [Concomitant]
     Dosage: UNK
     Route: 048
     Dates: start: 20090409
  4. BIOFERMIN R [Concomitant]
     Dosage: UNK
     Route: 048
     Dates: start: 20090409
  5. DIMETICONE [Concomitant]
     Dosage: UNK
     Route: 048
     Dates: start: 20090409
  6. EQUA [Concomitant]
     Dosage: 100 MG DAILY
     Route: 048
     Dates: start: 20100326
  7. LIPIDIL [Concomitant]
     Dosage: 67 MG/DAY
     Route: 048
     Dates: start: 20091228
  8. PRORENAL [Concomitant]
     Dosage: 5 MG, 3X/DAY
     Route: 048
     Dates: start: 20110610
  9. RETICOLAN [Concomitant]
     Dosage: UNK
     Route: 048
     Dates: start: 20110610
  10. ALDIOXA [Concomitant]
     Dosage: UNK
     Route: 048
     Dates: start: 20110610
  11. CELECOXIB [Concomitant]
     Dosage: 100 MG, 2X/DAY
     Route: 048
     Dates: start: 20110930
  12. GLUFAST [Concomitant]
     Dosage: 10 MG, 3X/DAY
     Route: 048
     Dates: start: 20091228, end: 20100324

REACTIONS (3)
  - Acute respiratory failure [Recovered/Resolved with Sequelae]
  - Face oedema [Recovered/Resolved with Sequelae]
  - Jugular vein distension [Recovered/Resolved]
